FAERS Safety Report 7353412-0 (Version None)
Quarter: 2011Q1

REPORT INFORMATION
  Report Type: 
  Country: None (occurrence: None)
  Receive Date: 20110315
  Receipt Date: 20110311
  Transmission Date: 20110831
  Serious: Yes (Death, Life-Threatening, Hospitalization)
  Sender: FDA-Public Use
  Company Number: DE-SANOFI-AVENTIS-2011SA010324

PATIENT
  Age: 62 Year
  Sex: Male
  Weight: 60 kg

DRUGS (14)
  1. DEXAMETHASONE [Concomitant]
     Route: 065
     Dates: start: 20110205, end: 20110205
  2. CLEXANE [Concomitant]
  3. CISPLATIN [Suspect]
     Indication: HYPOPHARYNGEAL CANCER
     Route: 041
     Dates: start: 20110205, end: 20110206
  4. METOCLOPRAMIDE HCL [Concomitant]
  5. ALDACTONE [Concomitant]
  6. DOCETAXEL [Suspect]
     Indication: HYPOPHARYNGEAL CANCER
     Route: 041
     Dates: start: 20110205, end: 20110205
  7. DEXAMETHASONE [Concomitant]
     Route: 065
     Dates: start: 20110206, end: 20110207
  8. CLORAZEPATE DIPOTASSIUM [Concomitant]
     Route: 065
     Dates: start: 20110205, end: 20110205
  9. OMEPRAZOLE [Concomitant]
  10. DEXAMETHASONE [Concomitant]
     Route: 065
     Dates: start: 20110204, end: 20110204
  11. GRANISETRON HCL [Concomitant]
  12. FUROSEMID [Concomitant]
  13. OSMOFUNDIN [Concomitant]
  14. ALLOPURINOL [Concomitant]

REACTIONS (5)
  - PULMONARY SEPSIS [None]
  - LEUKOPENIA [None]
  - PERIPHERAL CIRCULATORY FAILURE [None]
  - RENAL FAILURE [None]
  - BONE MARROW FAILURE [None]
